FAERS Safety Report 9790803 (Version 1)
Quarter: 2013Q4

REPORT INFORMATION
  Report Type: Spontaneous
  Country: US (occurrence: US)
  Receive Date: 20131231
  Receipt Date: 20131231
  Transmission Date: 20140711
  Serious: Yes (Hospitalization, Other)
  Sender: FDA-Public Use
  Company Number: US-TAKEDA-2013TUS003462

PATIENT
  Sex: 0

DRUGS (10)
  1. PIOGLITAZONE [Suspect]
     Indication: TYPE 2 DIABETES MELLITUS
     Dosage: 30 MG, QD
  2. PIOGLITAZONE [Suspect]
     Dosage: 45 MG, QD
  3. INSULIN [Concomitant]
     Dosage: 140 U/D
  4. CAPTOPRIL [Concomitant]
  5. CARVEDIOL [Concomitant]
  6. FUROSEMIDE [Concomitant]
  7. ASPIRIN [Concomitant]
  8. ISOSORBIDE [Concomitant]
  9. SIMVASTATIN [Concomitant]
  10. SPIRONOLACTONE [Concomitant]

REACTIONS (3)
  - Cardiac failure congestive [Unknown]
  - Pulmonary oedema [Unknown]
  - Weight increased [Unknown]
